FAERS Safety Report 7293117-8 (Version None)
Quarter: 2011Q1

REPORT INFORMATION
  Report Type: 
  Country: None (occurrence: None)
  Receive Date: 20110215
  Receipt Date: 20110207
  Transmission Date: 20110831
  Serious: Yes (Hospitalization)
  Sender: FDA-Public Use
  Company Number: FR-ROCHE-758608

PATIENT
  Sex: Male

DRUGS (2)
  1. AVASTIN [Suspect]
     Route: 065
  2. AVASTIN [Suspect]
     Dosage: DISCONTINUED DUE TO SURGERY.
     Route: 065

REACTIONS (1)
  - INTESTINAL ISCHAEMIA [None]
